FAERS Safety Report 19614176 (Version 1)
Quarter: 2021Q3

REPORT INFORMATION
  Report Type: Spontaneous
  Country: US (occurrence: US)
  Receive Date: 20210727
  Receipt Date: 20210727
  Transmission Date: 20211014
  Serious: Yes (Other)
  Sender: FDA-Public Use
  Company Number: US-ENDO PHARMACEUTICALS INC-2021-006121

PATIENT
  Age: 32 Year
  Sex: Female

DRUGS (2)
  1. RANITIDINE. [Suspect]
     Active Substance: RANITIDINE
     Indication: DYSPEPSIA
     Dosage: UNK UNKNOWN, DAILY
     Route: 065
     Dates: start: 199401, end: 201501
  2. RANITIDINE HYDROCHLORIDE. [Suspect]
     Active Substance: RANITIDINE HYDROCHLORIDE
     Indication: DYSPEPSIA
     Dosage: UNK UNKNOWN, DAILY
     Route: 065
     Dates: start: 199401, end: 201501

REACTIONS (2)
  - Renal cancer stage I [Unknown]
  - Thyroid cancer [Unknown]

NARRATIVE: CASE EVENT DATE: 19980101
